FAERS Safety Report 15608585 (Version 1)
Quarter: 2018Q4

REPORT INFORMATION
  Report Type: Spontaneous
  Country: AU (occurrence: AU)
  Receive Date: 20181112
  Receipt Date: 20181112
  Transmission Date: 20190205
  Serious: Yes (Other)
  Sender: FDA-Public Use
  Company Number: AU-SA-2018SA304352

PATIENT

DRUGS (2)
  1. PANAMAX [Suspect]
     Active Substance: ACETAMINOPHEN
     Dosage: UNK UNK, UNK
  2. FEXOFENADINE [Suspect]
     Active Substance: FEXOFENADINE\FEXOFENADINE HYDROCHLORIDE
     Dosage: UNK UNK, UNK
     Route: 065

REACTIONS (1)
  - Epilepsy [Unknown]
